FAERS Safety Report 8310105-0 (Version None)
Quarter: 2012Q2

REPORT INFORMATION
  Report Type: 
  Country: None (occurrence: None)
  Receive Date: 20120425
  Receipt Date: 20120416
  Transmission Date: 20120825
  Serious: Yes (Hospitalization, Disabling)
  Sender: FDA-Public Use
  Company Number: PL-MPIJNJ-2012-00857

PATIENT

DRUGS (3)
  1. VELCADE [Suspect]
     Indication: MULTIPLE MYELOMA
     Dosage: 2.5 MG, UNK
     Route: 042
     Dates: start: 20111128, end: 20120121
  2. DEXAMETHASONE [Concomitant]
     Dosage: 40 MG, UNK
     Route: 042
     Dates: start: 20110316, end: 20120121
  3. DEXAMETHASONE [Concomitant]
     Indication: MULTIPLE MYELOMA
     Dosage: 20 MG, UNK
     Route: 042
     Dates: start: 20110316, end: 20120121

REACTIONS (1)
  - POLYNEUROPATHY [None]
